FAERS Safety Report 12189741 (Version 1)
Quarter: 2016Q1

REPORT INFORMATION
  Report Type: Spontaneous
  Country: US (occurrence: US)
  Receive Date: 20160318
  Receipt Date: 20160318
  Transmission Date: 20160526
  Serious: No
  Sender: FDA-Public Use
  Company Number: US-ASTRAZENECA-2016SE26177

PATIENT
  Age: 17231 Day
  Sex: Female
  Weight: 105.2 kg

DRUGS (8)
  1. DIPHENHYDRAMINE HYDROCHLORIDE. [Concomitant]
     Active Substance: DIPHENHYDRAMINE HYDROCHLORIDE
  2. TAMOXIFEN [Concomitant]
     Active Substance: TAMOXIFEN
     Indication: NEOPLASM MALIGNANT
     Dates: start: 2013
  3. METFORMIN [Concomitant]
     Active Substance: METFORMIN HYDROCHLORIDE
     Indication: DIABETES MELLITUS
     Dates: start: 2000
  4. GLIPIZIDE. [Concomitant]
     Active Substance: GLIPIZIDE
     Indication: DIABETES MELLITUS
     Dates: start: 2000
  5. PREDNISONE. [Concomitant]
     Active Substance: PREDNISONE
  6. BYDUREON [Suspect]
     Active Substance: EXENATIDE
     Indication: TYPE 2 DIABETES MELLITUS
     Route: 058
     Dates: start: 20160222, end: 20160229
  7. LISINOPRIL. [Suspect]
     Active Substance: LISINOPRIL
     Route: 048
     Dates: start: 2000
  8. HYDROXYZINE [Concomitant]
     Active Substance: HYDROXYZINE\HYDROXYZINE HYDROCHLORIDE

REACTIONS (19)
  - Pruritus [Unknown]
  - Urinary tract infection [Unknown]
  - Nasal congestion [Unknown]
  - Papule [Unknown]
  - Pyrexia [Unknown]
  - Productive cough [Unknown]
  - Tonsillitis [Unknown]
  - Foreign body [Unknown]
  - Swelling face [Unknown]
  - Visual impairment [Not Recovered/Not Resolved]
  - Dyspnoea [Not Recovered/Not Resolved]
  - Erythema [Unknown]
  - Activities of daily living impaired [Unknown]
  - Chills [Unknown]
  - Feeling abnormal [Unknown]
  - Throat tightness [Unknown]
  - Sinus disorder [Unknown]
  - Euphoric mood [Unknown]
  - Urticaria [Unknown]

NARRATIVE: CASE EVENT DATE: 20160229
